FAERS Safety Report 7874510-9 (Version None)
Quarter: 2011Q4

REPORT INFORMATION
  Report Type: 
  Country: None (occurrence: None)
  Receive Date: 20111030
  Receipt Date: 20110520
  Transmission Date: 20120403
  Serious: No
  Sender: FDA-Public Use
  Company Number: US-AMGEN-USASP2011026577

PATIENT
  Age: 51 Year
  Sex: Male
  Weight: 97 kg

DRUGS (9)
  1. SIMVASTATIN [Concomitant]
     Dosage: 20 MG, UNK
     Route: 048
  2. FISH OIL [Concomitant]
     Dosage: 1000 UNK, UNK
     Route: 048
  3. CALTRATE D PLUS MINERALS [Concomitant]
     Dosage: UNK
     Route: 048
  4. ENBREL [Suspect]
     Indication: PRODUCT USED FOR UNKNOWN INDICATION
     Dosage: 50 MG, QWK
     Route: 058
  5. LISINOPRIL HCT                     /01613901/ [Concomitant]
     Dosage: UNK
     Route: 048
  6. SULFASALAZINE [Concomitant]
     Dosage: 500 MG, UNK
     Route: 048
  7. AMLODIPINE [Concomitant]
     Dosage: 2.5 MG, UNK
     Route: 048
  8. VITAMIN D [Concomitant]
     Dosage: 1000 UNIT, UNK
     Route: 048
  9. LEVOTHYROXINE SODIUM [Concomitant]
     Dosage: 800 MUG, UNK
     Route: 048

REACTIONS (2)
  - FATIGUE [None]
  - PAIN IN EXTREMITY [None]
